FAERS Safety Report 7071387-9 (Version None)
Quarter: 2010Q4

REPORT INFORMATION
  Report Type: 
  Country: None (occurrence: None)
  Receive Date: 20101029
  Receipt Date: 20090930
  Transmission Date: 20110411
  Serious: No
  Sender: FDA-Public Use
  Company Number: A0694499A

PATIENT
  Age: 89 Year
  Sex: Female

DRUGS (6)
  1. ADVAIR DISKUS 100/50 [Suspect]
     Indication: ASTHMA
     Route: 055
     Dates: start: 20070901
  2. LIPITOR [Concomitant]
  3. ISORBID [Concomitant]
  4. SYNTHROID [Concomitant]
  5. FOLIC ACID [Concomitant]
  6. DILTIAZEM [Concomitant]

REACTIONS (4)
  - ACCIDENTAL EXPOSURE [None]
  - CANDIDIASIS [None]
  - MEDICATION ERROR [None]
  - SENSATION OF FOREIGN BODY [None]
